FAERS Safety Report 22151379 (Version 1)
Quarter: 2023Q1

REPORT INFORMATION
  Report Type: Spontaneous
  Country: US (occurrence: None)
  Receive Date: 20230328
  Receipt Date: 20230328
  Transmission Date: 20230417
  Serious: Yes (Other)
  Sender: FDA-Public Use
  Company Number: None

PATIENT
  Age: 43 Year
  Sex: Female
  Weight: 110.25 kg

DRUGS (11)
  1. TIROSINT-SOL [Suspect]
     Active Substance: LEVOTHYROXINE SODIUM
     Indication: Hypothyroidism
     Dosage: OTHER QUANTITY : 30 AMPULES;?FREQUENCY : DAILY;?
     Route: 048
     Dates: start: 20221219, end: 20230304
  2. DEVICE [Concomitant]
     Active Substance: DEVICE
  3. LOSARTAN [Concomitant]
     Active Substance: LOSARTAN
  4. metopropolol [Concomitant]
  5. ARMODAFINIL [Concomitant]
     Active Substance: ARMODAFINIL
  6. HYDROCHLOROTHIAZIDE [Concomitant]
     Active Substance: HYDROCHLOROTHIAZIDE
  7. VALACYCLOVIR [Concomitant]
     Active Substance: VALACYCLOVIR HYDROCHLORIDE
  8. Synthroid (replaced tirosint) [Concomitant]
  9. OMEPRAZOLE [Concomitant]
     Active Substance: OMEPRAZOLE
  10. VITAMIN D [Concomitant]
     Active Substance: VITAMIN D NOS
  11. ZYRTEC [Concomitant]
     Active Substance: CETIRIZINE HYDROCHLORIDE

REACTIONS (5)
  - Recalled product administered [None]
  - Fatigue [None]
  - Palpitations [None]
  - Feeling abnormal [None]
  - Confusional state [None]

NARRATIVE: CASE EVENT DATE: 20230303
